FAERS Safety Report 11231348 (Version 1)
Quarter: 2015Q2

REPORT INFORMATION
  Report Type: Spontaneous
  Country: US (occurrence: None)
  Receive Date: 20150630
  Receipt Date: 20150630
  Transmission Date: 20150821
  Serious: Yes (Hospitalization)
  Sender: FDA-Public Use
  Company Number: None

PATIENT
  Age: 58 Year
  Sex: Male
  Weight: 121 kg

DRUGS (18)
  1. CIPROFLOXACIN. [Concomitant]
     Active Substance: CIPROFLOXACIN
  2. CARVEDILOL. [Concomitant]
     Active Substance: CARVEDILOL
  3. FLUCONAZOLE. [Concomitant]
     Active Substance: FLUCONAZOLE
  4. ATORVASTATIN [Concomitant]
     Active Substance: ATORVASTATIN
  5. CYTARABINE. [Suspect]
     Active Substance: CYTARABINE
     Dates: end: 20150611
  6. MERCAPTOPURINE. [Suspect]
     Active Substance: MERCAPTOPURINE
     Dates: end: 20150616
  7. MULTIPLE VITAMIN [Concomitant]
     Active Substance: VITAMINS
  8. PHYTONADIONE. [Concomitant]
     Active Substance: PHYTONADIONE
  9. METHOTREXATE [Suspect]
     Active Substance: METHOTREXATE
     Dates: end: 20150617
  10. ONDANSETRON [Concomitant]
     Active Substance: ONDANSETRON
  11. GABAPENTIN. [Concomitant]
     Active Substance: GABAPENTIN
  12. OMEGA-3 FATTY ACIDS [Concomitant]
     Active Substance: OMEGA-3 FATTY ACIDS
  13. ERGOCALCIFEROL. [Concomitant]
     Active Substance: ERGOCALCIFEROL
  14. FLUTICASONE [Concomitant]
     Active Substance: FLUTICASONE\FLUTICASONE PROPIONATE
  15. LISINOPRIL. [Concomitant]
     Active Substance: LISINOPRIL
  16. NITROGLYCERIN. [Concomitant]
     Active Substance: NITROGLYCERIN
  17. ACYCLOVIR. [Concomitant]
     Active Substance: ACYCLOVIR
  18. SULFAMETHAXAZOLE/TRIMETHOPRIM [Concomitant]

REACTIONS (3)
  - Chills [None]
  - Headache [None]
  - Abdominal pain [None]

NARRATIVE: CASE EVENT DATE: 20150620
